FAERS Safety Report 4996546-8 (Version None)
Quarter: 2006Q2

REPORT INFORMATION
  Report Type: 
  Country: None (occurrence: None)
  Receive Date: 20060509
  Receipt Date: 20050524
  Transmission Date: 20061013
  Serious: Yes (Death, Life-Threatening, Hospitalization)
  Sender: FDA-Public Use
  Company Number: PT-AMGEN-UK135741

PATIENT
  Sex: Male
  Weight: 78 kg

DRUGS (10)
  1. NEULASTA [Suspect]
     Indication: CHEMOTHERAPY
     Route: 065
     Dates: start: 20050514
  2. FUROSEMIDE [Concomitant]
     Route: 042
  3. SPIRONOLACTONE [Concomitant]
     Route: 048
     Dates: start: 20050519
  4. CAPTOPRIL [Concomitant]
     Route: 048
     Dates: start: 20050519
  5. AMIODARONE HCL [Concomitant]
     Route: 048
     Dates: start: 20050519
  6. METFORMIN [Concomitant]
     Route: 048
     Dates: start: 20050519
  7. NEUPOGEN [Concomitant]
     Route: 065
     Dates: start: 20050519
  8. PIPERACILLIN + TAZOBACTAM SODIUM [Concomitant]
     Route: 042
     Dates: start: 20050520
  9. AMPHOTERICIN B [Concomitant]
     Route: 042
     Dates: start: 20050521
  10. RITUXIMAB [Concomitant]
     Route: 065
     Dates: start: 20050513

REACTIONS (6)
  - CARDIO-RESPIRATORY ARREST [None]
  - DISEASE RECURRENCE [None]
  - DRUG INEFFECTIVE [None]
  - PLEURAL EFFUSION [None]
  - RESPIRATORY ACIDOSIS [None]
  - URINARY TRACT INFECTION FUNGAL [None]
